FAERS Safety Report 18390919 (Version 1)
Quarter: 2020Q4

REPORT INFORMATION
  Report Type: Report from Study
  Country: US (occurrence: US)
  Receive Date: 20201016
  Receipt Date: 20201016
  Transmission Date: 20210114
  Serious: No
  Sender: FDA-Public Use
  Company Number: NVSC2020US275415

PATIENT
  Age: 63 Year
  Sex: Female

DRUGS (2)
  1. ENTRESTO [Suspect]
     Active Substance: SACUBITRIL\VALSARTAN
     Indication: CARDIAC FAILURE CONGESTIVE
     Dosage: 50 MG (24.26 MG), BID
     Route: 048
     Dates: start: 201907
  2. ENTRESTO [Suspect]
     Active Substance: SACUBITRIL\VALSARTAN
     Dosage: UNK (24.26 MG, 1 AND 1/2 TABLET ONCE A DAY)
     Route: 048

REACTIONS (6)
  - Heart rate decreased [Unknown]
  - Wrong technique in product usage process [Recovering/Resolving]
  - Chest pain [Recovering/Resolving]
  - Ejection fraction decreased [Unknown]
  - Hypotension [Recovering/Resolving]
  - Fluid retention [Unknown]

NARRATIVE: CASE EVENT DATE: 202008
